FAERS Safety Report 22622262 (Version 3)
Quarter: 2023Q4

REPORT INFORMATION
  Report Type: Spontaneous
  Country: US (occurrence: US)
  Receive Date: 20230620
  Receipt Date: 20231204
  Transmission Date: 20240110
  Serious: No
  Sender: FDA-Public Use
  Company Number: US-BRISTOL-MYERS SQUIBB COMPANY-2023-086524

PATIENT
  Age: 37 Year
  Sex: Male

DRUGS (3)
  1. SPRYCEL [Suspect]
     Active Substance: DASATINIB
     Indication: Chronic myeloid leukaemia
     Route: 048
     Dates: start: 20220615
  2. SPRYCEL [Suspect]
     Active Substance: DASATINIB
     Route: 048
     Dates: start: 202206
  3. SPRYCEL [Suspect]
     Active Substance: DASATINIB
     Route: 048
     Dates: start: 202203

REACTIONS (7)
  - Nausea [Unknown]
  - Vomiting [Unknown]
  - Headache [Unknown]
  - Hyperhidrosis [Unknown]
  - Gastroenteritis [Recovering/Resolving]
  - Pain in extremity [Unknown]
  - Anxiety [Unknown]

NARRATIVE: CASE EVENT DATE: 20230614
